FAERS Safety Report 12290659 (Version 1)
Quarter: 2016Q2

REPORT INFORMATION
  Report Type: Spontaneous
  Country: DE (occurrence: DE)
  Receive Date: 20160421
  Receipt Date: 20160421
  Transmission Date: 20160815
  Serious: Yes (Other)
  Sender: FDA-Public Use
  Company Number: GXKR2016DE002003

PATIENT
  Sex: Male

DRUGS (2)
  1. CEFUROXIM 1 A PHARMA [Suspect]
     Active Substance: CEFUROXIME
     Indication: COUGH
     Dosage: 500 MG, QD
     Route: 048
     Dates: start: 20160127, end: 20160201
  2. CEFUROXIM 1 A PHARMA [Suspect]
     Active Substance: CEFUROXIME
     Indication: SINUS HEADACHE

REACTIONS (1)
  - Myocardial infarction [Unknown]

NARRATIVE: CASE EVENT DATE: 20160308
